FAERS Safety Report 5533356-7 (Version None)
Quarter: 2007Q4

REPORT INFORMATION
  Report Type: 
  Country: None (occurrence: None)
  Receive Date: 20071129
  Receipt Date: 20071129
  Transmission Date: 20080405
  Serious: Yes (Hospitalization)
  Sender: FDA-Public Use
  Company Number: None

PATIENT
  Sex: Female
  Weight: 86 kg

DRUGS (1)
  1. CISPLATIN [Suspect]
     Dosage: 380 MG
     Dates: end: 20071119

REACTIONS (2)
  - NAUSEA [None]
  - VOMITING [None]
